FAERS Safety Report 7554233-6 (Version None)
Quarter: 2011Q2

REPORT INFORMATION
  Report Type: 
  Country: None (occurrence: None)
  Receive Date: 20110610
  Receipt Date: 20110527
  Transmission Date: 20111010
  Serious: Yes (Hospitalization, Other)
  Sender: FDA-Public Use
  Company Number: 2011MA005880

PATIENT
  Age: 18 Year
  Sex: Female

DRUGS (6)
  1. PROPOFOL [Concomitant]
  2. HALOPERIDOL LACTATE [Suspect]
     Indication: SEDATIVE THERAPY
     Dosage: 5 MG;1X;IV
     Route: 042
  3. FENTANYL [Concomitant]
  4. MORPHINE [Concomitant]
  5. ROPIVACAINE HYDROCHLORIDE [Concomitant]
  6. DROPERIDOL [Concomitant]

REACTIONS (22)
  - MYOCLONUS [None]
  - ALTERED STATE OF CONSCIOUSNESS [None]
  - CATATONIA [None]
  - PYREXIA [None]
  - INCOHERENT [None]
  - IRRITABILITY [None]
  - TACHYCARDIA [None]
  - NO THERAPEUTIC RESPONSE [None]
  - WAXY FLEXIBILITY [None]
  - MUSCLE RIGIDITY [None]
  - DRUG INEFFECTIVE [None]
  - APHASIA [None]
  - NEUROLEPTIC MALIGNANT SYNDROME [None]
  - PSYCHOMOTOR HYPERACTIVITY [None]
  - RESTLESSNESS [None]
  - DYSPNOEA [None]
  - HYPERHIDROSIS [None]
  - GRIP STRENGTH DECREASED [None]
  - TACHYPNOEA [None]
  - ANXIETY [None]
  - CONFUSIONAL STATE [None]
  - PAIN IN EXTREMITY [None]
